FAERS Safety Report 8448341-5 (Version None)
Quarter: 2012Q2

REPORT INFORMATION
  Report Type: 
  Country: None (occurrence: None)
  Receive Date: 20120619
  Receipt Date: 20120615
  Transmission Date: 20120825
  Serious: Yes (Life-Threatening, Hospitalization, Other)
  Sender: FDA-Public Use
  Company Number: TH-ROCHE-1061925

PATIENT
  Sex: Female
  Weight: 53 kg

DRUGS (8)
  1. PLACEBO [Suspect]
     Indication: RHEUMATOID ARTHRITIS
  2. MEROPENEM [Concomitant]
     Dates: start: 20120503, end: 20120509
  3. CARVEDILOL [Concomitant]
     Dates: start: 20120410, end: 20120425
  4. AMIODARONE HCL [Concomitant]
     Dates: start: 20120502
  5. MEROPENEM [Concomitant]
     Dates: start: 20120416, end: 20120429
  6. ACTEMRA [Suspect]
     Indication: RHEUMATOID ARTHRITIS
     Dosage: LAST DOSE PRIOR TO THE EVENT: 06/DEC/2011
     Route: 042
     Dates: start: 20091224
  7. MEROPENEM [Concomitant]
     Dates: start: 20120416, end: 20120503
  8. AMIODARONE HCL [Concomitant]
     Dates: start: 20120418, end: 20120501

REACTIONS (4)
  - ISCHAEMIC CEREBRAL INFARCTION [None]
  - ATRIAL FIBRILLATION [None]
  - PNEUMONIA [None]
  - ACUTE MYOCARDIAL INFARCTION [None]
